FAERS Safety Report 20098544 (Version 1)
Quarter: 2021Q4

REPORT INFORMATION
  Report Type: Spontaneous
  Country: US (occurrence: US)
  Receive Date: 20211122
  Receipt Date: 20211122
  Transmission Date: 20220303
  Serious: No
  Sender: FDA-Public Use
  Company Number: US-BRACCO-2021US00053

PATIENT
  Age: 72 Year
  Sex: Male

DRUGS (3)
  1. LUMASON [Suspect]
     Active Substance: SULFUR HEXAFLUORIDE
     Indication: Echocardiogram
     Dosage: ONE FULL VIAL AND 1 ML, SINGLE
     Route: 013
     Dates: start: 20210108, end: 20210108
  2. LUMASON [Suspect]
     Active Substance: SULFUR HEXAFLUORIDE
     Indication: Echocardiogram
     Dosage: ONE FULL VIAL AND 1 ML, SINGLE
     Route: 013
     Dates: start: 20210108, end: 20210108
  3. LUMASON [Suspect]
     Active Substance: SULFUR HEXAFLUORIDE
     Indication: Echocardiogram
     Dosage: ONE FULL VIAL AND 1 ML, SINGLE
     Route: 013
     Dates: start: 20210108, end: 20210108

REACTIONS (2)
  - Incorrect route of product administration [Unknown]
  - No adverse event [Unknown]

NARRATIVE: CASE EVENT DATE: 20210108
